FAERS Safety Report 16994980 (Version 1)
Quarter: 2019Q4

REPORT INFORMATION
  Report Type: Spontaneous
  Country: US (occurrence: US)
  Receive Date: 20191105
  Receipt Date: 20191105
  Transmission Date: 20200122
  Serious: Yes (Death, Hospitalization, Other)
  Sender: FDA-Public Use
  Company Number: US-GALDERMA-US19063660

PATIENT
  Age: 54 Year
  Sex: Male

DRUGS (11)
  1. ALBUTEROL. [Concomitant]
     Active Substance: ALBUTEROL
     Indication: PRODUCT USED FOR UNKNOWN INDICATION
     Dosage: INHALER
     Route: 055
  2. DECITABINE. [Concomitant]
     Active Substance: DECITABINE
     Indication: ACUTE MYELOID LEUKAEMIA
     Route: 065
  3. FLECAINIDE [Concomitant]
     Active Substance: FLECAINIDE
     Indication: WOLFF-PARKINSON-WHITE SYNDROME
     Route: 065
     Dates: start: 201707
  4. LASIX [Concomitant]
     Active Substance: FUROSEMIDE
     Indication: PRODUCT USED FOR UNKNOWN INDICATION
     Route: 065
  5. METOPROLOL XL [Concomitant]
     Active Substance: METOPROLOL SUCCINATE
     Indication: WOLFF-PARKINSON-WHITE SYNDROME
     Dosage: EXTENDED RELEASE
     Route: 065
     Dates: start: 201707
  6. DULOXETINE. [Concomitant]
     Active Substance: DULOXETINE
     Indication: PRODUCT USED FOR UNKNOWN INDICATION
     Route: 065
  7. AMLODIPINE [Concomitant]
     Active Substance: AMLODIPINE BESYLATE
     Indication: PRODUCT USED FOR UNKNOWN INDICATION
     Route: 065
  8. PANTOPRAZOLE [Concomitant]
     Active Substance: PANTOPRAZOLE
     Indication: PRODUCT USED FOR UNKNOWN INDICATION
     Route: 065
  9. DOXYCYCLINE. [Suspect]
     Active Substance: DOXYCYCLINE
     Indication: PRODUCT USED FOR UNKNOWN INDICATION
     Route: 065
  10. DABIGATRAN [Concomitant]
     Active Substance: DABIGATRAN
     Indication: PRODUCT USED FOR UNKNOWN INDICATION
     Route: 065
  11. AMIODARONE [Concomitant]
     Active Substance: AMIODARONE
     Indication: PRODUCT USED FOR UNKNOWN INDICATION
     Route: 065

REACTIONS (22)
  - Femur fracture [Unknown]
  - Rales [Unknown]
  - Brugada syndrome [Not Recovered/Not Resolved]
  - Graft versus host disease [Unknown]
  - Pneumonia [Unknown]
  - Electrocardiogram QRS complex prolonged [Recovered/Resolved]
  - Sepsis [Fatal]
  - Supraventricular tachycardia [Unknown]
  - Oedema peripheral [Unknown]
  - Ventricular tachycardia [Recovered/Resolved]
  - Renal impairment [Unknown]
  - Shock [Fatal]
  - Seizure [Unknown]
  - Cardiac failure [Unknown]
  - Cardio-respiratory arrest [Recovered/Resolved]
  - Leukaemic infiltration [Unknown]
  - Pulmonary embolism [Unknown]
  - Deep vein thrombosis [Unknown]
  - Wolff-Parkinson-White syndrome [Unknown]
  - Dyspnoea [Unknown]
  - Cardiac arrest [Recovered/Resolved]
  - Hepatic function abnormal [Unknown]

NARRATIVE: CASE EVENT DATE: 201601
